FAERS Safety Report 5650449-4 (Version None)
Quarter: 2008Q1

REPORT INFORMATION
  Report Type: 
  Country: None (occurrence: None)
  Receive Date: 20080303
  Receipt Date: 20080220
  Transmission Date: 20080703
  Serious: Yes (Other)
  Sender: FDA-Public Use
  Company Number: 2008BI004200

PATIENT
  Age: 35 Year
  Sex: Male

DRUGS (3)
  1. TYSABRI [Suspect]
     Indication: MULTIPLE SCLEROSIS
     Dosage: 300 MG; QM; IV
     Route: 042
     Dates: start: 20071016
  2. LIORESAL [Concomitant]
  3. LEVOCARNIL [Concomitant]

REACTIONS (2)
  - ALLERGIC BRONCHITIS [None]
  - DISEASE RECURRENCE [None]
